FAERS Safety Report 7279477-2 (Version None)
Quarter: 2011Q1

REPORT INFORMATION
  Report Type: 
  Country: None (occurrence: None)
  Receive Date: 20110208
  Receipt Date: 20110125
  Transmission Date: 20110831
  Serious: Yes (Hospitalization)
  Sender: FDA-Public Use
  Company Number: US-BIOGENIDEC-2010BI042392

PATIENT
  Age: 64 Year
  Sex: Female

DRUGS (1)
  1. TYSABRI [Suspect]
     Indication: MULTIPLE SCLEROSIS
     Route: 042
     Dates: start: 20100128

REACTIONS (23)
  - ANAEMIA [None]
  - MUSCULAR WEAKNESS [None]
  - DRY MOUTH [None]
  - PAIN IN EXTREMITY [None]
  - MENTAL IMPAIRMENT [None]
  - FLUSHING [None]
  - FALL [None]
  - RESTLESS LEGS SYNDROME [None]
  - DYSKINESIA [None]
  - FEELING COLD [None]
  - BRONCHOPNEUMONIA [None]
  - WHEEZING [None]
  - EMOTIONAL DISTRESS [None]
  - CANDIDIASIS [None]
  - DYSARTHRIA [None]
  - OROPHARYNGEAL PAIN [None]
  - INFECTION [None]
  - FATIGUE [None]
  - SPEECH DISORDER [None]
  - GAIT DISTURBANCE [None]
  - STOMATITIS [None]
  - BURNING SENSATION [None]
  - HEADACHE [None]
